FAERS Safety Report 8087311-6 (Version None)
Quarter: 2012Q1

REPORT INFORMATION
  Report Type: 
  Country: None (occurrence: None)
  Receive Date: 20120128
  Receipt Date: 20110516
  Transmission Date: 20120608
  Serious: No
  Sender: FDA-Public Use
  Company Number: US-ABBOTT-11P-163-0726071-00

PATIENT
  Age: 52 Year
  Sex: Female

DRUGS (7)
  1. VITAMIN E [Concomitant]
     Indication: PRODUCT USED FOR UNKNOWN INDICATION
  2. CHERRY EXTRACT [Concomitant]
     Indication: HYPERSENSITIVITY
  3. HUMIRA [Suspect]
     Indication: RHEUMATOID ARTHRITIS
     Dosage: DOSE VERIFIED DUE TO WEIGHT
     Dates: start: 20110504
  4. GINSENG [Concomitant]
     Indication: HYPERSENSITIVITY
  5. VITAMIN B COMPLEX CAP [Concomitant]
     Indication: PRODUCT USED FOR UNKNOWN INDICATION
  6. ASCORBIC ACID [Concomitant]
     Indication: PRODUCT USED FOR UNKNOWN INDICATION
  7. LOVAZA [Concomitant]
     Indication: PRODUCT USED FOR UNKNOWN INDICATION

REACTIONS (3)
  - ARTHRALGIA [None]
  - INJECTION SITE RASH [None]
  - EYELID OEDEMA [None]
